FAERS Safety Report 5032405-2 (Version None)
Quarter: 2006Q2

REPORT INFORMATION
  Report Type: 
  Country: None (occurrence: None)
  Receive Date: 20060620
  Receipt Date: 20060620
  Transmission Date: 20061013
  Serious: Yes (Hospitalization, Disabling)
  Sender: FDA-Public Use
  Company Number: SP00864

PATIENT
  Sex: Female

DRUGS (1)
  1. VISICOL [Suspect]
     Indication: COLONOSCOPY
     Dosage: 28 TABLETS (OVER THE COURSE OF A DAY)
     Dates: start: 20040501, end: 20040501

REACTIONS (14)
  - ABDOMINAL DISCOMFORT [None]
  - AMNESIA [None]
  - ASTHENIA [None]
  - BALANCE DISORDER [None]
  - BLOOD POTASSIUM DECREASED [None]
  - BLOOD SODIUM DECREASED [None]
  - COMA [None]
  - DIARRHOEA [None]
  - DIZZINESS [None]
  - ELECTROLYTE IMBALANCE [None]
  - FATIGUE [None]
  - GRAND MAL CONVULSION [None]
  - HEADACHE [None]
  - VOMITING [None]
